FAERS Safety Report 11064214 (Version 1)
Quarter: 2015Q2

REPORT INFORMATION
  Report Type: Spontaneous
  Country: IT (occurrence: IT)
  Receive Date: 20150424
  Receipt Date: 20150424
  Transmission Date: 20150821
  Serious: Yes (Other)
  Sender: FDA-Public Use
  Company Number: IT-JNJFOC-20150414704

PATIENT
  Age: 51 Year
  Sex: Male
  Weight: 80 kg

DRUGS (2)
  1. MICROSER [Suspect]
     Active Substance: BETAHISTINE HYDROCHLORIDE
     Indication: PRODUCT USED FOR UNKNOWN INDICATION
     Route: 065
     Dates: start: 20150416, end: 20150416
  2. INVEGA [Suspect]
     Active Substance: PALIPERIDONE
     Indication: PRODUCT USED FOR UNKNOWN INDICATION
     Route: 048
     Dates: start: 20150416, end: 20150416

REACTIONS (2)
  - Self injurious behaviour [Unknown]
  - Intentional overdose [Unknown]

NARRATIVE: CASE EVENT DATE: 20150416
